FAERS Safety Report 16464924 (Version 1)
Quarter: 2019Q2

REPORT INFORMATION
  Report Type: Spontaneous
  Country: US (occurrence: US)
  Receive Date: 20190621
  Receipt Date: 20190621
  Transmission Date: 20190711
  Serious: No
  Sender: FDA-Public Use
  Company Number: US-ALLERGAN-1923344US

PATIENT
  Age: 22 Year
  Sex: Female

DRUGS (1)
  1. SAPHRIS [Suspect]
     Active Substance: ASENAPINE MALEATE
     Indication: BIPOLAR DISORDER
     Dosage: UNK UNK, QPM
     Route: 048
     Dates: start: 201905

REACTIONS (4)
  - Inappropriate schedule of product administration [Unknown]
  - Mouth ulceration [Unknown]
  - Incorrect route of product administration [Unknown]
  - Dry mouth [Unknown]

NARRATIVE: CASE EVENT DATE: 201905
